FAERS Safety Report 11026047 (Version 3)
Quarter: 2015Q2

REPORT INFORMATION
  Report Type: Spontaneous
  Country: MX (occurrence: MX)
  Receive Date: 20150414
  Receipt Date: 20150417
  Transmission Date: 20150821
  Serious: Yes (Other)
  Sender: FDA-Public Use
  Company Number: MX-PFIZER INC-2015125252

PATIENT

DRUGS (1)
  1. ZYVOXAM [Suspect]
     Active Substance: LINEZOLID

REACTIONS (1)
  - Retinal injury [Unknown]
